FAERS Safety Report 6189975-0 (Version None)
Quarter: 2009Q2

REPORT INFORMATION
  Report Type: 
  Country: None (occurrence: None)
  Receive Date: 20090514
  Receipt Date: 20090506
  Transmission Date: 20091009
  Serious: Yes (Other)
  Sender: FDA-Public Use
  Company Number: PHEH2009US04468

PATIENT
  Sex: Female

DRUGS (1)
  1. RECLAST [Suspect]
     Indication: OSTEOPOROSIS
     Dosage: UNK, UNK
     Dates: start: 20080201, end: 20080201

REACTIONS (5)
  - ARTHRALGIA [None]
  - BIOPSY INTESTINE ABNORMAL [None]
  - COELIAC DISEASE [None]
  - DIARRHOEA [None]
  - WEIGHT DECREASED [None]
